FAERS Safety Report 9816372 (Version 1)
Quarter: 2014Q1

REPORT INFORMATION
  Report Type: Spontaneous
  Country: US (occurrence: US)
  Receive Date: 20140114
  Receipt Date: 20140114
  Transmission Date: 20141002
  Serious: Yes (Death)
  Sender: FDA-Public Use
  Company Number: US-PFIZER INC-2014007172

PATIENT
  Age: 47 Year
  Sex: Male

DRUGS (6)
  1. FENTANYL [Suspect]
     Dosage: UNK
     Route: 065
  2. HYDROXYZINE PAMOATE [Suspect]
     Dosage: UNK
     Route: 065
  3. TRAZODONE [Suspect]
     Dosage: UNK
     Route: 065
  4. OLANZAPINE [Suspect]
     Dosage: UNK
     Route: 065
  5. CITALOPRAM [Suspect]
     Dosage: UNK
     Route: 065
  6. BENZTROPINE [Suspect]
     Dosage: UNK
     Route: 065

REACTIONS (1)
  - Drug abuse [Fatal]
